FAERS Safety Report 8175798-X (Version None)
Quarter: 2012Q1

REPORT INFORMATION
  Report Type: 
  Country: None (occurrence: None)
  Receive Date: 20120228
  Receipt Date: 20120214
  Transmission Date: 20120608
  Serious: Yes (Hospitalization, Other)
  Sender: FDA-Public Use
  Company Number: 2012P1000451

PATIENT
  Age: 54 Year
  Sex: Female
  Weight: 120.6568 kg

DRUGS (20)
  1. VITAMIN D [Concomitant]
  2. COLACE [Concomitant]
  3. XANAX [Concomitant]
  4. ASPIRIN [Concomitant]
  5. LANTUS [Concomitant]
  6. FENTANYL [Suspect]
     Indication: BREAKTHROUGH PAIN
     Dosage: 1 PATCH;Q72H;TDER
     Dates: start: 20111001
  7. EXTRA STRENGTH VICODIN [Concomitant]
  8. PROZAC [Concomitant]
  9. TOPAMAX [Concomitant]
  10. EYE DROPS (UNSPECIFIED) [Concomitant]
  11. FLEXERIL [Concomitant]
  12. MIRAPEX [Concomitant]
  13. ALBUTEROL INHALER [Concomitant]
  14. FENTANYL [Suspect]
     Indication: PAIN
     Dates: start: 20110606, end: 20111001
  15. POTASSIUM CHLORIDE [Concomitant]
  16. LASIX [Concomitant]
  17. LYRICA [Concomitant]
  18. PROZAC [Concomitant]
  19. NOVOLOG SLIDING SCALE [Concomitant]
  20. TEGRATOL XR [Concomitant]

REACTIONS (5)
  - PULMONARY CALCIFICATION [None]
  - PNEUMONIA [None]
  - ARTERIAL THERAPEUTIC PROCEDURE [None]
  - MALAISE [None]
  - BREAKTHROUGH PAIN [None]
